FAERS Safety Report 9972593 (Version 1)
Quarter: 2014Q1

REPORT INFORMATION
  Report Type: Report from Study
  Country: US (occurrence: US)
  Receive Date: 20140306
  Receipt Date: 20140306
  Transmission Date: 20141002
  Serious: No
  Sender: FDA-Public Use
  Company Number: US-ABBVIE-13P-163-1154302-00

PATIENT
  Age: 42 Year
  Sex: Female

DRUGS (28)
  1. HUMIRA [Suspect]
     Indication: RHEUMATOID ARTHRITIS
     Dates: start: 201110
  2. ABILIFY [Concomitant]
     Indication: PRODUCT USED FOR UNKNOWN INDICATION
  3. COLACE [Concomitant]
     Indication: PRODUCT USED FOR UNKNOWN INDICATION
  4. ECHINACEA [Concomitant]
     Indication: PRODUCT USED FOR UNKNOWN INDICATION
  5. FERROUS SULFATE [Concomitant]
     Indication: PRODUCT USED FOR UNKNOWN INDICATION
  6. FLONASE [Concomitant]
     Indication: PRODUCT USED FOR UNKNOWN INDICATION
     Dosage: 2 SPRAYS
  7. FOLATE [Concomitant]
     Indication: PRODUCT USED FOR UNKNOWN INDICATION
  8. GARLIC [Concomitant]
     Indication: PRODUCT USED FOR UNKNOWN INDICATION
  9. LEVETIRACETAM [Concomitant]
     Indication: PRODUCT USED FOR UNKNOWN INDICATION
  10. LOTRISONE [Concomitant]
     Indication: PRODUCT USED FOR UNKNOWN INDICATION
     Dosage: TO AFFECTED AREA
  11. METOPROLOL SUCC CT [Concomitant]
     Indication: PRODUCT USED FOR UNKNOWN INDICATION
  12. NORVASC [Concomitant]
     Indication: PRODUCT USED FOR UNKNOWN INDICATION
  13. PLAVIX [Concomitant]
     Indication: PRODUCT USED FOR UNKNOWN INDICATION
  14. PRILOSEC [Concomitant]
     Indication: PRODUCT USED FOR UNKNOWN INDICATION
  15. SYNTHROID [Concomitant]
     Indication: PRODUCT USED FOR UNKNOWN INDICATION
  16. TOPAMAX [Concomitant]
     Indication: PRODUCT USED FOR UNKNOWN INDICATION
  17. VITAMIN C [Concomitant]
     Indication: PRODUCT USED FOR UNKNOWN INDICATION
  18. VITAMIN D [Concomitant]
     Indication: PRODUCT USED FOR UNKNOWN INDICATION
     Dosage: 50,000 UNITS WEEKLY
  19. VIT D [Concomitant]
     Indication: PRODUCT USED FOR UNKNOWN INDICATION
  20. ZOCOR [Concomitant]
     Indication: PRODUCT USED FOR UNKNOWN INDICATION
  21. ALBUTEROL HFA [Concomitant]
     Indication: PRODUCT USED FOR UNKNOWN INDICATION
  22. KLONOPIN [Concomitant]
     Indication: PRODUCT USED FOR UNKNOWN INDICATION
     Dosage: AS NEEDED
  23. MAXALT [Concomitant]
     Indication: PRODUCT USED FOR UNKNOWN INDICATION
     Dosage: AS NEEDED
  24. VIMPAT [Concomitant]
     Indication: PRODUCT USED FOR UNKNOWN INDICATION
  25. NYSTATIN [Concomitant]
     Indication: PRODUCT USED FOR UNKNOWN INDICATION
     Dosage: AS NEEDED
  26. SYSTANE [Concomitant]
     Indication: PRODUCT USED FOR UNKNOWN INDICATION
     Dosage: 1 GTT, AS NEEDED
  27. SYSTANE [Concomitant]
     Indication: PRODUCT USED FOR UNKNOWN INDICATION
     Dosage: 1 GTT, AS NEEDED
  28. TYLENOL [Concomitant]
     Indication: PRODUCT USED FOR UNKNOWN INDICATION
     Dosage: AS NEEDED

REACTIONS (5)
  - Confusional state [Not Recovered/Not Resolved]
  - Lethargy [Not Recovered/Not Resolved]
  - Palpitations [Not Recovered/Not Resolved]
  - Hypertension [Not Recovered/Not Resolved]
  - Wrong technique in drug usage process [Not Recovered/Not Resolved]
